FAERS Safety Report 17599146 (Version 1)
Quarter: 2020Q1

REPORT INFORMATION
  Report Type: Spontaneous
  Country: US (occurrence: US)
  Receive Date: 20200330
  Receipt Date: 20200330
  Transmission Date: 20200409
  Serious: Yes (Disabling, Other)
  Sender: FDA-Public Use
  Company Number: None

PATIENT
  Age: 72 Year
  Sex: Female
  Weight: 88.65 kg

DRUGS (21)
  1. PLAVIX [Concomitant]
     Active Substance: CLOPIDOGREL BISULFATE
  2. ELMIRON [Concomitant]
     Active Substance: PENTOSAN POLYSULFATE SODIUM
  3. LUNESTA [Concomitant]
     Active Substance: ESZOPICLONE
  4. EMGALITY [Suspect]
     Active Substance: GALCANEZUMAB-GNLM
     Indication: MIGRAINE
     Dosage: ?          OTHER FREQUENCY:ONCE MONTHLY;OTHER ROUTE:INJECTION?
     Dates: start: 20200301
  5. HYDROCHLOROT [Concomitant]
     Active Substance: HYDROCHLOROTHIAZIDE
  6. IBUPROFEN. [Concomitant]
     Active Substance: IBUPROFEN
  7. SINGULAIR [Concomitant]
     Active Substance: MONTELUKAST SODIUM
  8. TOPRAMATE [Concomitant]
  9. FIORICET [Concomitant]
     Active Substance: ACETAMINOPHEN\BUTALBITAL\CAFFEINE
  10. HAIR, SKIN, + NAILS [Concomitant]
  11. VITAMIN D [Concomitant]
     Active Substance: VITAMIN D NOS
  12. ASPIRIN. [Concomitant]
     Active Substance: ASPIRIN
  13. LISINOPRIL. [Concomitant]
     Active Substance: LISINOPRIL
  14. ZYRTEC [Concomitant]
     Active Substance: CETIRIZINE HYDROCHLORIDE
  15. WELLBUTRIN [Concomitant]
     Active Substance: BUPROPION HYDROCHLORIDE
  16. EMGALITY [Concomitant]
     Active Substance: GALCANEZUMAB-GNLM
  17. BOTOX [Suspect]
     Active Substance: ONABOTULINUMTOXINA
     Indication: HEADACHE
     Route: 008
     Dates: end: 20191205
  18. ABILIFY [Concomitant]
     Active Substance: ARIPIPRAZOLE
  19. ATORVASTATIN [Concomitant]
     Active Substance: ATORVASTATIN
  20. WELCHOL [Concomitant]
     Active Substance: COLESEVELAM HYDROCHLORIDE
  21. PROBIOTIC CAPSULES [Concomitant]
     Active Substance: PROBIOTICS NOS

REACTIONS (3)
  - Headache [None]
  - Muscular weakness [None]
  - Musculoskeletal discomfort [None]

NARRATIVE: CASE EVENT DATE: 20191205
